FAERS Safety Report 6383593-7 (Version None)
Quarter: 2009Q4

REPORT INFORMATION
  Report Type: 
  Country: None (occurrence: None)
  Receive Date: 20091001
  Receipt Date: 20090925
  Transmission Date: 20100525
  Serious: Yes (Other)
  Sender: FDA-Public Use
  Company Number: US-ROCHE-658814

PATIENT
  Sex: Male
  Weight: 79.8 kg

DRUGS (1)
  1. CAPECITABINE [Suspect]
     Indication: HEAD AND NECK CANCER
     Dosage: 2 TABS AM AND 3 TABS PM
     Route: 048
     Dates: start: 20090513, end: 20090901

REACTIONS (2)
  - HEAD AND NECK CANCER [None]
  - MALIGNANT NEOPLASM PROGRESSION [None]
